FAERS Safety Report 12078973 (Version 1)
Quarter: 2016Q1

REPORT INFORMATION
  Report Type: Spontaneous
  Country: IT (occurrence: IT)
  Receive Date: 20160216
  Receipt Date: 20160216
  Transmission Date: 20160526
  Serious: Yes (Hospitalization)
  Sender: FDA-Public Use
  Company Number: IT-UCBSA-2016004819

PATIENT
  Age: 43 Year
  Sex: Male

DRUGS (2)
  1. AZILECT [Suspect]
     Active Substance: RASAGILINE MESYLATE
     Indication: PARKINSONISM
     Dosage: 1 MG, ONCE DAILY (QD)
     Route: 048
     Dates: start: 20150829, end: 20160101
  2. NEUPRO [Suspect]
     Active Substance: ROTIGOTINE
     Indication: PARKINSONISM
     Dosage: 2 MG, ONCE DAILY (QD)
     Route: 062
     Dates: start: 20150829, end: 20160101

REACTIONS (4)
  - Initial insomnia [Recovering/Resolving]
  - Memory impairment [Recovering/Resolving]
  - Increased appetite [Recovering/Resolving]
  - Disturbance in attention [Recovering/Resolving]

NARRATIVE: CASE EVENT DATE: 20150901
